FAERS Safety Report 14790376 (Version 1)
Quarter: 2018Q2

REPORT INFORMATION
  Report Type: Report from Study
  Country: KR (occurrence: KR)
  Receive Date: 20180423
  Receipt Date: 20180423
  Transmission Date: 20180711
  Serious: No
  Sender: FDA-Public Use
  Company Number: KR-B.I. PHARMACEUTICALS,INC./RIDGEFIELD-2018-BI-020922

PATIENT
  Age: 59 Year
  Sex: Female

DRUGS (8)
  1. GLUPA COMBI [Concomitant]
     Dosage: DOSE- 250/40 MG, 500/80 MG
     Route: 065
     Dates: start: 20160628
  2. RISENEXPLUS [Concomitant]
     Indication: OSTEOPOROSIS
     Dosage: DOSE- 35/5600 MG/LU
     Route: 065
     Dates: start: 20161202
  3. TROMVIX [Concomitant]
     Indication: ARTERIOSCLEROSIS
     Route: 065
     Dates: start: 20140829
  4. GLUPA COMBI [Concomitant]
     Indication: DIABETES MELLITUS
     Dosage: DOSE- 1000/160 MG
     Route: 065
     Dates: start: 20160305, end: 20160429
  5. JARDIANCE [Suspect]
     Active Substance: EMPAGLIFLOZIN
     Indication: TYPE 2 DIABETES MELLITUS
     Route: 048
     Dates: start: 20161202
  6. DEUSTIN [Concomitant]
     Indication: DYSLIPIDAEMIA
  7. GLUPA COMBI [Concomitant]
     Dosage: DOSE- 500/80 MG
     Route: 065
     Dates: start: 20160430, end: 20160627
  8. DEUSTIN [Concomitant]
     Indication: HYPERTENSION
     Dosage: DOSE- 5/10  MG
     Route: 065
     Dates: start: 20160901

REACTIONS (1)
  - Atrophic vulvovaginitis [Recovered/Resolved]

NARRATIVE: CASE EVENT DATE: 20170209
